FAERS Safety Report 5413372-6 (Version None)
Quarter: 2007Q3

REPORT INFORMATION
  Report Type: 
  Country: None (occurrence: None)
  Receive Date: 20070814
  Receipt Date: 20070807
  Transmission Date: 20080115
  Serious: Yes (Other)
  Sender: FDA-Public Use
  Company Number: US-JNJFOC-20070801903

PATIENT
  Age: 67 Year
  Sex: Female
  Weight: 61.24 kg

DRUGS (2)
  1. EXTRA STRENGTH TYLENOL [Suspect]
  2. EXTRA STRENGTH TYLENOL [Suspect]
     Indication: ARTHRALGIA
     Dosage: 500 MG A DAY, EVERY FEW DAYS

REACTIONS (1)
  - HAEMORRHAGE [None]
